FAERS Safety Report 8051376-8 (Version None)
Quarter: 2012Q1

REPORT INFORMATION
  Report Type: 
  Country: None (occurrence: None)
  Receive Date: 20120117
  Receipt Date: 20120106
  Transmission Date: 20120608
  Serious: Yes (Other)
  Sender: FDA-Public Use
  Company Number: FR-ASTRAZENECA-2011SE72955

PATIENT
  Age: 24524 Day
  Sex: Female
  Weight: 62 kg

DRUGS (14)
  1. LEVOTHYROXINE SODIUM [Concomitant]
     Indication: HYPOTHYROIDISM
     Dosage: 75 MCG, DAILY, LONG LASTING TREATMENT
     Route: 048
  2. NORMACOL [Concomitant]
     Dosage: ONES/SINGLE ADMINISTRATION
     Dates: start: 20111124
  3. SPASFON [Concomitant]
     Dosage: TWO TABLETS, DAILY
     Dates: start: 20111124
  4. QUETIAPINE FUMARATE [Suspect]
     Indication: MAJOR DEPRESSION
     Route: 048
     Dates: start: 20111116, end: 20111117
  5. LAMISIL [Concomitant]
  6. XANAX [Concomitant]
     Indication: ANXIETY
     Dosage: 0.375 MG, DAILY, LONG LASTING TREATMENT
     Route: 048
     Dates: start: 20111110, end: 20111116
  7. ZYPREXA [Concomitant]
     Dates: end: 20111116
  8. QUETIAPINE FUMARATE [Suspect]
     Route: 048
     Dates: start: 20111118, end: 20111123
  9. XANAX [Concomitant]
     Dates: start: 20111116
  10. TENORMIN [Concomitant]
     Dosage: 25 MG, DAILY, LONG LASTING TREATMENT
     Route: 048
  11. PAROXETINE HCL [Concomitant]
     Dosage: 20 MG, DAILY, LONG LASTING TREATMENT
     Route: 048
  12. LOCERYL [Concomitant]
     Route: 061
     Dates: start: 20111118
  13. IMOVANE [Concomitant]
     Indication: INSOMNIA
     Dosage: 7.5 MG, DAILY, LONG LASTING TREATMENT
     Route: 048
  14. POLYETHYLENE GLYCOL [Concomitant]
     Dosage: 10 GRAMS, AS REQUIRED, LONG LASTING TREATMENT
     Route: 048
     Dates: start: 20111110

REACTIONS (1)
  - URINARY RETENTION [None]
